FAERS Safety Report 12417929 (Version 1)
Quarter: 2016Q2

REPORT INFORMATION
  Report Type: Report from Study
  Country: DE (occurrence: DE)
  Receive Date: 20160531
  Receipt Date: 20160531
  Transmission Date: 20160815
  Serious: Yes (Hospitalization)
  Sender: FDA-Public Use
  Company Number: DE-ROCHE-1723473

PATIENT
  Age: 46 Year
  Sex: Male
  Weight: 76.1 kg

DRUGS (14)
  1. VENETOCLAX [Suspect]
     Active Substance: VENETOCLAX
     Indication: NON-HODGKIN^S LYMPHOMA
     Dosage: MOST RECENT DOSE OF VENETOCLAX 800 MG WAS ADMINISTERED ON 27/FEB/2016
     Route: 048
     Dates: start: 20151119
  2. BENDAMUSTINE [Suspect]
     Active Substance: BENDAMUSTINE
     Indication: NON-HODGKIN^S LYMPHOMA
     Dosage: MOST RECENT DOSE OF BENDAMUSTINE 180 MG WAS ADMINISTERED ON 20/FEB/2016
     Route: 042
     Dates: start: 20151218
  3. GRANISETRON [Concomitant]
     Active Substance: GRANISETRON
     Route: 065
     Dates: start: 20160220, end: 20160220
  4. FOLIC ACID. [Concomitant]
     Active Substance: FOLIC ACID
     Indication: BLOOD FOLATE DECREASED
     Route: 065
     Dates: start: 20160211
  5. METOCLOPRAMID [Concomitant]
     Active Substance: METOCLOPRAMIDE
     Indication: NAUSEA
     Route: 065
     Dates: start: 20151228
  6. DIFLUCAN [Concomitant]
     Active Substance: FLUCONAZOLE
     Indication: NEUTROPENIA
     Route: 065
     Dates: start: 20160114, end: 20160217
  7. ACIC [Concomitant]
     Active Substance: ACYCLOVIR
     Indication: PROPHYLAXIS
     Route: 065
     Dates: start: 20151203
  8. FENISTIL (GERMANY) [Concomitant]
     Indication: PROPHYLAXIS
     Route: 065
     Dates: start: 20160218, end: 20160218
  9. BLEMAREN [Concomitant]
     Indication: TUMOUR LYSIS SYNDROME
     Route: 065
     Dates: start: 20151119
  10. CIPROFLOXACIN. [Concomitant]
     Active Substance: CIPROFLOXACIN
     Indication: NEUTROPENIA
     Route: 065
     Dates: start: 20160114, end: 20160217
  11. RITUXIMAB [Suspect]
     Active Substance: RITUXIMAB
     Indication: NON-HODGKIN^S LYMPHOMA
     Dosage: MOST RECENT DOSE OF RITUXIMAB 740 MG WAS ADMINISTERED ON 18/FEB/2016
     Route: 042
     Dates: start: 20151119
  12. PARACETAMOL [Concomitant]
     Active Substance: ACETAMINOPHEN
     Indication: PROPHYLAXIS
     Route: 065
     Dates: start: 20160218, end: 20160218
  13. PREDNISOLON [Concomitant]
     Active Substance: PREDNISOLONE
     Indication: PROPHYLAXIS
     Route: 065
     Dates: start: 20160218, end: 20160218
  14. GRANISETRON [Concomitant]
     Active Substance: GRANISETRON
     Indication: PROPHYLAXIS
     Route: 065
     Dates: start: 20160219, end: 20160219

REACTIONS (2)
  - Sepsis [Recovered/Resolved]
  - Febrile neutropenia [Recovered/Resolved]

NARRATIVE: CASE EVENT DATE: 20160228
